FAERS Safety Report 19458383 (Version 1)
Quarter: 2021Q2

REPORT INFORMATION
  Report Type: Spontaneous
  Country: IN (occurrence: IN)
  Receive Date: 20210624
  Receipt Date: 20210624
  Transmission Date: 20210717
  Serious: Yes (Other)
  Sender: FDA-Public Use
  Company Number: IN-MYLANLABS-2021M1037056

PATIENT
  Age: 29 Year
  Sex: Female

DRUGS (1)
  1. ETOPOSIDE. [Suspect]
     Active Substance: ETOPOSIDE
     Indication: BREAST CANCER METASTATIC
     Dosage: 50 MILLIGRAM/SQ. METER
     Route: 048

REACTIONS (2)
  - Macular ischaemia [Unknown]
  - Toxicity to various agents [Unknown]
